FAERS Safety Report 5067970-2 (Version None)
Quarter: 2006Q3

REPORT INFORMATION
  Report Type: 
  Country: None (occurrence: None)
  Receive Date: 20060717
  Receipt Date: 20060309
  Transmission Date: 20061208
  Serious: Yes (Hospitalization, Other)
  Sender: FDA-Public Use
  Company Number: 2006-03-0541

PATIENT
  Age: 58 Year
  Sex: Male

DRUGS (7)
  1. INTEGRILIN [Suspect]
     Indication: PLATELET AGGREGATION INHIBITION
     Dosage: INTRAVENOUS
     Route: 042
     Dates: start: 20060221
  2. BLINDED STUDY CATEGORY - NON-SCHERING DRUGS [Suspect]
  3. ZOCOR [Concomitant]
  4. ATENOLOL [Concomitant]
  5. LISINOPRIL [Concomitant]
  6. TRICOR [Concomitant]
  7. ASPIRIN [Concomitant]

REACTIONS (1)
  - THROMBOCYTOPENIA [None]
